FAERS Safety Report 20856451 (Version 2)
Quarter: 2022Q2

REPORT INFORMATION
  Report Type: Spontaneous
  Country: US (occurrence: US)
  Receive Date: 20220520
  Receipt Date: 20220627
  Transmission Date: 20220721
  Serious: No
  Sender: FDA-Public Use
  Company Number: US-SA-SAC20220511001786

PATIENT
  Sex: Male

DRUGS (2)
  1. DUPIXENT [Suspect]
     Active Substance: DUPILUMAB
     Indication: Asthma
     Dosage: 300 MG, QOW
     Route: 058
     Dates: start: 202102
  2. BIOFLEX [ACECLOFENAC] [Concomitant]
     Dosage: UNK

REACTIONS (5)
  - Abdominal distension [Unknown]
  - Back pain [Unknown]
  - Weight increased [Unknown]
  - Insomnia [Unknown]
  - Increased appetite [Unknown]

NARRATIVE: CASE EVENT DATE: 20220101
